FAERS Safety Report 15766854 (Version 4)
Quarter: 2020Q1

REPORT INFORMATION
  Report Type: Spontaneous
  Country: US (occurrence: US)
  Receive Date: 20181227
  Receipt Date: 20200117
  Transmission Date: 20200409
  Serious: No
  Sender: FDA-Public Use
  Company Number: US-PFIZER INC-2018529411

PATIENT
  Age: 44 Year
  Sex: Male

DRUGS (2)
  1. DILANTIN [Suspect]
     Active Substance: PHENYTOIN
     Dosage: 600 MG, 2X/DAY (^6 TABLETS^ TWICE DAILY)
  2. DILANTIN [Suspect]
     Active Substance: PHENYTOIN
     Dosage: 300 MG, 2X/DAY (300 AM AND 300 PM)

REACTIONS (2)
  - Prescribed overdose [Unknown]
  - Blood count abnormal [Unknown]
